FAERS Safety Report 7785340-0 (Version None)
Quarter: 2011Q3

REPORT INFORMATION
  Report Type: 
  Country: None (occurrence: None)
  Receive Date: 20110929
  Receipt Date: 20110927
  Transmission Date: 20111222
  Serious: Yes (Other)
  Sender: FDA-Public Use
  Company Number: US-PFIZER INC-2011086439

PATIENT
  Sex: Male

DRUGS (12)
  1. HUMIBID [Concomitant]
     Indication: SINUSITIS
     Dosage: UNK
     Dates: start: 20060101, end: 20080101
  2. ACETAMINOPHEN AND HYDROCODONE BITARTRATE [Concomitant]
     Indication: PAIN
     Dosage: UNK
     Dates: start: 20030101, end: 20110101
  3. ZYPREXA [Concomitant]
     Indication: PSYCHOTIC DISORDER
     Dosage: UNK
     Dates: start: 20060101
  4. CHANTIX [Suspect]
     Indication: SMOKING CESSATION THERAPY
     Dosage: STARTER PACK AND CONTINUOUS PACKS
     Dates: start: 20071001, end: 20080101
  5. IBUPROFEN [Concomitant]
     Indication: HEADACHE
     Dosage: UNK
     Dates: start: 20050101
  6. DOXYCYCLINE [Concomitant]
     Indication: INFECTION
     Dosage: UNK
     Dates: start: 20060101, end: 20080101
  7. GEODON [Concomitant]
     Indication: PSYCHOTIC DISORDER
     Dosage: UNK
     Dates: start: 20060101, end: 20080101
  8. KLONOPIN [Concomitant]
     Indication: ANXIETY
     Dosage: UNK
     Dates: start: 20060101, end: 20090101
  9. VALIUM [Concomitant]
     Indication: ANXIETY
     Dosage: UNK
     Dates: start: 20030101, end: 20090101
  10. ZITHROMAX [Concomitant]
     Indication: INFECTION
     Dosage: UNK
     Dates: start: 20030101, end: 20090101
  11. FLONASE [Concomitant]
     Indication: SEASONAL ALLERGY
     Dosage: UNK
     Dates: start: 20060101, end: 20090101
  12. PREVACID [Concomitant]
     Indication: GASTROOESOPHAGEAL REFLUX DISEASE
     Dosage: UNK
     Dates: start: 20030101, end: 20080101

REACTIONS (5)
  - SUICIDAL IDEATION [None]
  - PSYCHOTIC DISORDER [None]
  - AGGRESSION [None]
  - ANXIETY [None]
  - DEPRESSION [None]
